FAERS Safety Report 9282290 (Version 1)
Quarter: 2013Q2

REPORT INFORMATION
  Report Type: Spontaneous
  Country: US (occurrence: US)
  Receive Date: 20130510
  Receipt Date: 20130510
  Transmission Date: 20140414
  Serious: No
  Sender: FDA-Public Use
  Company Number: US-PFIZER INC-2013144162

PATIENT
  Sex: Male

DRUGS (1)
  1. LYRICA [Suspect]
     Dosage: UNK
     Dates: start: 2013

REACTIONS (2)
  - Abdominal distension [Unknown]
  - Weight increased [Unknown]
